FAERS Safety Report 18732470 (Version 1)
Quarter: 2021Q1

REPORT INFORMATION
  Report Type: Report from Study
  Country: BR (occurrence: BR)
  Receive Date: 20210112
  Receipt Date: 20210112
  Transmission Date: 20210419
  Serious: Yes (Death, Hospitalization)
  Sender: FDA-Public Use
  Company Number: BR-DSJP-DSE-2020-128979

PATIENT
  Age: 74 Year
  Sex: Male
  Weight: 98 kg

DRUGS (3)
  1. ATENOLOL. [Concomitant]
     Active Substance: ATENOLOL
     Indication: ATRIAL FIBRILLATION
     Dosage: UNK
     Route: 065
  2. SIMVASTATIN. [Concomitant]
     Active Substance: SIMVASTATIN
     Indication: DYSLIPIDAEMIA
     Dosage: UNK
     Route: 065
  3. EDOXABAN [Suspect]
     Active Substance: EDOXABAN TOSYLATE
     Indication: ATRIAL FIBRILLATION
     Dosage: 60 MG, QD
     Route: 048
     Dates: start: 20200723

REACTIONS (5)
  - Hypovolaemic shock [Fatal]
  - Intestinal obstruction [Fatal]
  - Haemorrhage urinary tract [Recovered/Resolved]
  - Vomiting [Fatal]
  - Diarrhoea [Fatal]

NARRATIVE: CASE EVENT DATE: 20200821
